FAERS Safety Report 8086664-2 (Version None)
Quarter: 2012Q1

REPORT INFORMATION
  Report Type: 
  Country: None (occurrence: None)
  Receive Date: 20120128
  Receipt Date: 20110517
  Transmission Date: 20120608
  Serious: No
  Sender: FDA-Public Use
  Company Number: US-ABBOTT-11P-163-0726645-00

PATIENT
  Age: 41 Year
  Sex: Male

DRUGS (17)
  1. OXYCODONE HCL [Concomitant]
     Indication: PRODUCT USED FOR UNKNOWN INDICATION
     Dosage: 5/325MG FOUR TIMES DAILY
  2. OMEPRAZOLE [Concomitant]
     Indication: GASTRIC DISORDER
  3. AMLODIPINE [Concomitant]
     Indication: BLOOD PRESSURE
  4. CITALOPRAM [Concomitant]
     Indication: DEPRESSION
  5. CLONAZEPAM [Concomitant]
     Indication: PRODUCT USED FOR UNKNOWN INDICATION
     Dosage: 4 TIMES DAILY AS REQUIRED
  6. STOOL SOFTENER [Concomitant]
     Indication: PRODUCT USED FOR UNKNOWN INDICATION
  7. METHOTREXATE [Concomitant]
     Indication: PRODUCT USED FOR UNKNOWN INDICATION
     Dosage: 4 PILLS ONCE WEEKLY
  8. CLONIDINE [Concomitant]
     Indication: BLOOD PRESSURE
     Dosage: AT BEDTIME
  9. RITALIN-SR [Concomitant]
     Indication: PRODUCT USED FOR UNKNOWN INDICATION
  10. HUMIRA [Suspect]
     Indication: RHEUMATOID ARTHRITIS
     Dates: start: 20100501
  11. BACLOFEN [Concomitant]
     Indication: MUSCLE SPASMS
     Dosage: AT BEDTIME
  12. TEGRETOL [Concomitant]
     Indication: BRAIN INJURY
     Dosage: AT BEDTIME
  13. MORPHINE SULFATE [Concomitant]
     Indication: PRODUCT USED FOR UNKNOWN INDICATION
  14. FOLIC ACID [Concomitant]
     Indication: PRODUCT USED FOR UNKNOWN INDICATION
  15. BUPROPION HYDROCHLORIDE [Concomitant]
     Indication: PRODUCT USED FOR UNKNOWN INDICATION
  16. ETODOLAC [Concomitant]
     Indication: PAIN
  17. VITAMIN TAB [Concomitant]
     Indication: PRODUCT USED FOR UNKNOWN INDICATION

REACTIONS (3)
  - ARTHRALGIA [None]
  - SKIN INDURATION [None]
  - RHEUMATOID ARTHRITIS [None]
